FAERS Safety Report 19418229 (Version 1)
Quarter: 2021Q2

REPORT INFORMATION
  Report Type: Spontaneous
  Country: US (occurrence: US)
  Receive Date: 20210615
  Receipt Date: 20210615
  Transmission Date: 20210717
  Serious: No
  Sender: FDA-Public Use
  Company Number: US-GLOBAL BLOOD THERAPEUTICS INC-US-GBT-21-01165

PATIENT
  Sex: Female

DRUGS (2)
  1. COVID VACCINE [Concomitant]
     Indication: IMMUNISATION
     Dosage: FIRST DOSE RECEIVED
  2. OXBRYTA [Suspect]
     Active Substance: VOXELOTOR
     Indication: SICKLE CELL DISEASE
     Route: 048
     Dates: start: 20200324

REACTIONS (2)
  - Sickle cell anaemia with crisis [Unknown]
  - Therapy interrupted [Unknown]
